FAERS Safety Report 25400469 (Version 1)
Quarter: 2025Q2

REPORT INFORMATION
  Report Type: Other
  Country: GB (occurrence: GB)
  Receive Date: 20250605
  Receipt Date: 20250605
  Transmission Date: 20250717
  Serious: Yes (Other)
  Sender: GLENMARK
  Company Number: GB-MHRA-EMIS-1496-01fcc944-6ac3-46ed-bee1-303cad4ccdd4

PATIENT
  Age: 69 Year
  Sex: Female
  Weight: 75 kg

DRUGS (2)
  1. GABAPENTIN [Suspect]
     Active Substance: GABAPENTIN
     Indication: Product used for unknown indication
     Dosage: UNK, TID, ONE IN THE MONRING, ONE AT LUNCH, TWO BEFORE BED
     Route: 065
     Dates: start: 20250127, end: 20250312
  2. HYDROCORTISONE [Concomitant]
     Active Substance: HYDROCORTISONE
     Indication: Product used for unknown indication
     Route: 065

REACTIONS (1)
  - Breast mass [Not Recovered/Not Resolved]
